FAERS Safety Report 10456419 (Version 1)
Quarter: 2014Q3

REPORT INFORMATION
  Report Type: Spontaneous
  Country: US (occurrence: None)
  Receive Date: 20140912
  Receipt Date: 20140912
  Transmission Date: 20150326
  Serious: Yes (Other)
  Sender: FDA-Public Use
  Company Number: JPI-P-027139

PATIENT
  Age: 40 Year
  Sex: Female

DRUGS (2)
  1. XYREM [Suspect]
     Active Substance: SODIUM OXYBATE
     Indication: CATAPLEXY
     Route: 048
     Dates: start: 200501
  2. XYREM [Suspect]
     Active Substance: SODIUM OXYBATE
     Indication: NARCOLEPSY
     Route: 048
     Dates: start: 200501

REACTIONS (9)
  - Limb injury [None]
  - Head injury [None]
  - Joint injury [None]
  - Prescribed overdose [None]
  - Neck injury [None]
  - Road traffic accident [None]
  - Brain injury [None]
  - Back injury [None]
  - Headache [None]

NARRATIVE: CASE EVENT DATE: 20070201
